FAERS Safety Report 9570909 (Version 2)
Quarter: 2014Q1

REPORT INFORMATION
  Report Type: Report from Study
  Country: DE (occurrence: DE)
  Receive Date: 20131001
  Receipt Date: 20140203
  Transmission Date: 20141002
  Serious: Yes (Other)
  Sender: FDA-Public Use
  Company Number: DE-ROCHE-1281046

PATIENT
  Age: 66 Year
  Sex: Female
  Weight: 83 kg

DRUGS (3)
  1. TOCILIZUMAB [Suspect]
     Indication: RHEUMATOID ARTHRITIS
     Route: 042
     Dates: start: 20100722
  2. TOCILIZUMAB [Suspect]
     Route: 042
     Dates: start: 20100819
  3. TOCILIZUMAB [Suspect]
     Route: 042
     Dates: start: 20100916

REACTIONS (5)
  - Depression [Unknown]
  - Dyspnoea [Unknown]
  - Dizziness [Recovered/Resolved]
  - Bronchitis [Recovered/Resolved]
  - Hyperhidrosis [Recovered/Resolved]
